FAERS Safety Report 9521577 (Version 8)
Quarter: 2014Q2

REPORT INFORMATION
  Report Type: Report from Study
  Country: CA (occurrence: CA)
  Receive Date: 20130913
  Receipt Date: 20140605
  Transmission Date: 20141212
  Serious: Yes (Hospitalization, Other)
  Sender: FDA-Public Use
  Company Number: CA-ROCHE-1135496

PATIENT
  Age: 55 Year
  Sex: Female
  Weight: 132.4 kg

DRUGS (17)
  1. RITUXAN [Suspect]
     Indication: RHEUMATOID ARTHRITIS
     Route: 042
     Dates: start: 20120913
  2. EMPRACET (ACETAMINOPHEN/CODEINE PHOSPHATE) [Concomitant]
  3. ATASOL PLAIN [Concomitant]
  4. SPIRONOLACTONE [Concomitant]
  5. SULFASALAZINE [Concomitant]
  6. ELAVIL (CANADA) [Concomitant]
  7. DOCUSATE [Concomitant]
  8. HYDROXYCHLOROQUINE [Concomitant]
  9. ENTROPHEN [Concomitant]
  10. FOLIC ACID [Concomitant]
  11. FLUNARIZINE [Concomitant]
  12. METFORMIN [Concomitant]
  13. PULMICORT [Concomitant]
  14. VENTOLIN [Concomitant]
  15. VERAPAMIL [Concomitant]
  16. METHOTREXATE [Concomitant]
  17. PREDNISONE [Concomitant]

REACTIONS (5)
  - Pyelonephritis acute [Recovered/Resolved]
  - Breast cancer [Unknown]
  - Incision site abscess [Recovering/Resolving]
  - Migraine [Recovered/Resolved]
  - Upper respiratory tract infection [Recovered/Resolved]
